FAERS Safety Report 11564760 (Version 1)
Quarter: 2015Q3

REPORT INFORMATION
  Report Type: Spontaneous
  Country: US (occurrence: US)
  Receive Date: 20150916
  Receipt Date: 20150916
  Transmission Date: 20151125
  Serious: No
  Sender: FDA-Public Use
  Company Number: US-ELI_LILLY_AND_COMPANY-US200903007477

PATIENT
  Age: 71 Year
  Sex: Female

DRUGS (12)
  1. METOPROLOL [Concomitant]
     Active Substance: METOPROLOL
  2. AMIODARONE [Concomitant]
     Active Substance: AMIODARONE
  3. PLAVIX [Concomitant]
     Active Substance: CLOPIDOGREL BISULFATE
     Indication: STENT PLACEMENT
  4. AVAPRO [Concomitant]
     Active Substance: IRBESARTAN
  5. CARISOPRODOL. [Concomitant]
     Active Substance: CARISOPRODOL
  6. BABY ASPIRIN [Concomitant]
     Active Substance: ASPIRIN
     Dosage: 81 MG, UNK
  7. VICODIN [Concomitant]
     Active Substance: ACETAMINOPHEN\HYDROCODONE BITARTRATE
  8. FORTEO [Suspect]
     Active Substance: TERIPARATIDE
     Indication: OSTEOPOROSIS
     Dates: start: 20090303
  9. ATIVAN [Concomitant]
     Active Substance: LORAZEPAM
     Indication: NERVOUSNESS
  10. FENTANYL. [Concomitant]
     Active Substance: FENTANYL
  11. CALTRATE WITH VITAMIN D [Concomitant]
     Active Substance: CALCIUM CARBONATE\CHOLECALCIFEROL
  12. VITAMINS NOS [Concomitant]
     Active Substance: VITAMINS

REACTIONS (4)
  - Walking aid user [Not Recovered/Not Resolved]
  - Back disorder [Not Recovered/Not Resolved]
  - Gait disturbance [Not Recovered/Not Resolved]
  - Back pain [Not Recovered/Not Resolved]

NARRATIVE: CASE EVENT DATE: 200903
